FAERS Safety Report 4822430-6 (Version None)
Quarter: 2005Q4

REPORT INFORMATION
  Report Type: 
  Country: None (occurrence: None)
  Receive Date: 20051103
  Receipt Date: 20051103
  Transmission Date: 20060501
  Serious: Yes (Death)
  Sender: FDA-Public Use
  Company Number: None

PATIENT
  Age: 75 Year
  Sex: Male
  Weight: 75.4 kg

DRUGS (11)
  1. CISPLATIN [Suspect]
     Indication: OESOPHAGEAL CARCINOMA
     Dosage: 75MG/M2 Q 3 WEEKS IV
     Route: 042
     Dates: start: 20051004
  2. DOCETAXEL [Suspect]
     Indication: OESOPHAGEAL CARCINOMA
     Dosage: 75 MG/M2 Q 3 WEEKS IV
     Route: 042
     Dates: start: 20051004
  3. LASIX [Concomitant]
  4. DIGOXIN [Concomitant]
  5. VYTORIN [Concomitant]
  6. DENTOXIFYLLIN [Concomitant]
  7. COUMADIN [Concomitant]
  8. AVAPRO [Concomitant]
  9. COMPAZINE [Concomitant]
  10. INSULIN [Concomitant]
  11. DECADRON [Concomitant]

REACTIONS (1)
  - DEATH [None]
